FAERS Safety Report 17877057 (Version 2)
Quarter: 2020Q2

REPORT INFORMATION
  Report Type: Spontaneous
  Country: BR (occurrence: BR)
  Receive Date: 20200609
  Receipt Date: 20200616
  Transmission Date: 20200714
  Serious: Yes (Other)
  Sender: FDA-Public Use
  Company Number: NVSC2020BR159748

PATIENT
  Sex: Female
  Weight: 87 kg

DRUGS (3)
  1. ARADOIS [Concomitant]
     Active Substance: LOSARTAN POTASSIUM
     Indication: BLOOD PRESSURE MEASUREMENT
     Dosage: 50 MG, QD(MORE THAN 5 YEARS AGO)
     Route: 048
  2. PREDNISOLONE ACETATE. [Suspect]
     Active Substance: PREDNISOLONE ACETATE
     Indication: INFLAMMATION
     Dosage: UNK(MORE THAN 8 OR 10 YEARS AGO AND 1 OR 2 DROPS,2 TO 3 TIMES PER DAY WITH FLASK WITH 10ML)
     Route: 061
  3. ATORVASTATIN [Suspect]
     Active Substance: ATORVASTATIN
     Indication: BLOOD CHOLESTEROL
     Dosage: 20 MG, QD(MORE THAN 5 YEARS AGO)
     Route: 048

REACTIONS (4)
  - Eye haemorrhage [Recovered/Resolved]
  - Product dose omission [Unknown]
  - Eye inflammation [Recovered/Resolved]
  - Ocular hyperaemia [Recovered/Resolved]
